FAERS Safety Report 5558770-5 (Version None)
Quarter: 2007Q4

REPORT INFORMATION
  Report Type: 
  Country: None (occurrence: None)
  Receive Date: 20071214
  Receipt Date: 20070906
  Transmission Date: 20080405
  Serious: No
  Sender: FDA-Public Use
  Company Number: US-ABBOTT-07P-163-0416307-00

PATIENT
  Sex: Female
  Weight: 67.646 kg

DRUGS (5)
  1. HUMIRA [Suspect]
     Indication: RHEUMATOID ARTHRITIS
     Route: 058
     Dates: start: 20060101
  2. LISINOPRIL [Concomitant]
     Indication: DRUG USE FOR UNKNOWN INDICATION
  3. LANSOPRAZOLE [Concomitant]
     Indication: DRUG USE FOR UNKNOWN INDICATION
  4. PROPACET 100 [Concomitant]
     Indication: DRUG USE FOR UNKNOWN INDICATION
  5. MAXZIDE [Concomitant]
     Indication: DRUG USE FOR UNKNOWN INDICATION

REACTIONS (4)
  - NASAL CONGESTION [None]
  - ORAL HERPES [None]
  - RHINORRHOEA [None]
  - SECRETION DISCHARGE [None]
